FAERS Safety Report 5419254-8 (Version None)
Quarter: 2007Q3

REPORT INFORMATION
  Report Type: 
  Country: None (occurrence: None)
  Receive Date: 20070816
  Receipt Date: 20070816
  Transmission Date: 20080115
  Serious: Yes (Disabling)
  Sender: FDA-Public Use
  Company Number: None

PATIENT
  Sex: Female
  Weight: 61.2356 kg

DRUGS (1)
  1. FLEET PHOSPHO-SODA ORAL SALINE LAXATIVE (90ML) C.B.FLEET CO. INC. [Suspect]
     Indication: COLONOSCOPY
     Dosage: 90 ML 1 TIME ONLY
     Dates: start: 20040623

REACTIONS (7)
  - BRONCHITIS [None]
  - COLITIS [None]
  - DEHYDRATION [None]
  - DIARRHOEA [None]
  - HYPERTENSION [None]
  - PNEUMONIA [None]
  - VOMITING [None]
